FAERS Safety Report 5950527-6 (Version None)
Quarter: 2008Q4

REPORT INFORMATION
  Report Type: 
  Country: None (occurrence: None)
  Receive Date: 20081022
  Receipt Date: 20080811
  Transmission Date: 20090506
  Serious: No
  Sender: FDA-Public Use
  Company Number: SPV1-2008-01576

PATIENT
  Age: 8 Year
  Sex: Male
  Weight: 27.2 kg

DRUGS (4)
  1. VYVANSE [Suspect]
     Indication: ATTENTION DEFICIT/HYPERACTIVITY DISORDER
     Dosage: 50 MG, 1X/DAY:QD, ORAL ; ONE AND A HALF 20MG CAPSULES, 1X/DAY:QD, ORAL
     Route: 048
     Dates: start: 20080601, end: 20080701
  2. VYVANSE [Suspect]
     Indication: ATTENTION DEFICIT/HYPERACTIVITY DISORDER
     Dosage: 50 MG, 1X/DAY:QD, ORAL ; ONE AND A HALF 20MG CAPSULES, 1X/DAY:QD, ORAL
     Route: 048
     Dates: start: 20080625, end: 20080715
  3. CLARITIN /004131701/ (GLICLAZIDE) [Concomitant]
  4. TRAZODONE HCL [Concomitant]

REACTIONS (3)
  - IMPULSIVE BEHAVIOUR [None]
  - MOOD SWINGS [None]
  - TIC [None]
